FAERS Safety Report 23391121 (Version 2)
Quarter: 2024Q1

REPORT INFORMATION
  Report Type: Spontaneous
  Country: KR (occurrence: KR)
  Receive Date: 20240111
  Receipt Date: 20240212
  Transmission Date: 20240409
  Serious: Yes (Life-Threatening, Hospitalization, Other)
  Sender: FDA-Public Use
  Company Number: KR-Accord-400153

PATIENT
  Age: 61 Year
  Sex: Male

DRUGS (1)
  1. HYDROCHLOROTHIAZIDE [Suspect]
     Active Substance: HYDROCHLOROTHIAZIDE
     Indication: Hypertension

REACTIONS (5)
  - Hyponatraemia [Recovered/Resolved]
  - Malnutrition [Unknown]
  - Dehydration [Unknown]
  - Brain injury [Unknown]
  - Osmotic demyelination syndrome [Unknown]
